FAERS Safety Report 19729810 (Version 1)
Quarter: 2021Q3

REPORT INFORMATION
  Report Type: Spontaneous
  Country: US (occurrence: US)
  Receive Date: 20210820
  Receipt Date: 20210820
  Transmission Date: 20211014
  Serious: Yes (Hospitalization, Other)
  Sender: FDA-Public Use
  Company Number: US-SA-2021SA275899

PATIENT
  Age: 80 Year
  Sex: Female

DRUGS (9)
  1. LOPERAMIDE HYDROCHLORIDE. [Suspect]
     Active Substance: LOPERAMIDE HYDROCHLORIDE
  2. LANSOPRAZOLE. [Suspect]
     Active Substance: LANSOPRAZOLE
  3. SUCRALFATE. [Concomitant]
     Active Substance: SUCRALFATE
  4. MIRTAZAPINE. [Suspect]
     Active Substance: MIRTAZAPINE
  5. ERTAPENEM. [Concomitant]
     Active Substance: ERTAPENEM SODIUM
  6. PLANTAGO PSYLLIUM [Suspect]
     Active Substance: HERBALS\PLANTAGO INDICA WHOLE
  7. CASPOFUNGIN [Concomitant]
     Active Substance: CASPOFUNGIN
  8. PLAVIX [Suspect]
     Active Substance: CLOPIDOGREL BISULFATE
  9. ELIQUIS [Suspect]
     Active Substance: APIXABAN
     Indication: THROMBOSIS
     Dosage: 2.5 MG

REACTIONS (1)
  - Drug ineffective [Unknown]
